FAERS Safety Report 5298432-5 (Version None)
Quarter: 2007Q2

REPORT INFORMATION
  Report Type: 
  Country: None (occurrence: None)
  Receive Date: 20070416
  Receipt Date: 20070404
  Transmission Date: 20071010
  Serious: Yes (Other)
  Sender: FDA-Public Use
  Company Number: NL-PFIZER INC-2007029189

PATIENT
  Sex: Female
  Weight: 56 kg

DRUGS (1)
  1. DOSTINEX [Suspect]
     Indication: PROLACTINOMA
     Route: 048

REACTIONS (7)
  - ARRHYTHMIA [None]
  - CONSTIPATION [None]
  - DEPRESSION [None]
  - DISTURBANCE IN ATTENTION [None]
  - FATIGUE [None]
  - GASTRITIS [None]
  - SYNCOPE [None]
